FAERS Safety Report 5586254-7 (Version None)
Quarter: 2007Q4

REPORT INFORMATION
  Report Type: 
  Country: None (occurrence: None)
  Receive Date: 20071212
  Receipt Date: 20070511
  Transmission Date: 20080405
  Serious: Yes (Other)
  Sender: FDA-Public Use
  Company Number: USA-2007-0027346

PATIENT
  Age: 54 Year
  Sex: Female

DRUGS (3)
  1. OXYCONTIN [Suspect]
     Indication: CANCER PAIN
     Dosage: 40 MG, QID
     Dates: start: 20060401
  2. FEMARA [Concomitant]
  3. LISINOPRIL [Concomitant]

REACTIONS (4)
  - ANXIETY [None]
  - DRUG DEPENDENCE [None]
  - FEELING ABNORMAL [None]
  - NERVOUSNESS [None]
